FAERS Safety Report 10441991 (Version 2)
Quarter: 2014Q4

REPORT INFORMATION
  Report Type: Spontaneous
  Country: JP (occurrence: JP)
  Receive Date: 20140909
  Receipt Date: 20141030
  Transmission Date: 20150528
  Serious: Yes (Hospitalization)
  Sender: FDA-Public Use
  Company Number: JP-GLAXOSMITHKLINE-B1027555A

PATIENT
  Age: 79 Year
  Sex: Male

DRUGS (1)
  1. PAZOPANIB [Suspect]
     Active Substance: PAZOPANIB
     Indication: MALIGNANT FIBROUS HISTIOCYTOMA
     Dosage: 400 MG, QD
     Route: 048
     Dates: start: 20140804, end: 20140814

REACTIONS (3)
  - Platelet count decreased [Recovered/Resolved]
  - Dysphagia [Recovered/Resolved]
  - Oropharyngeal pain [Unknown]

NARRATIVE: CASE EVENT DATE: 201408
